FAERS Safety Report 4448694-9 (Version None)
Quarter: 2004Q3

REPORT INFORMATION
  Report Type: 
  Country: None (occurrence: None)
  Receive Date: 20040909
  Receipt Date: 20030519
  Transmission Date: 20050211
  Serious: Yes (Hospitalization)
  Sender: FDA-Public Use
  Company Number: 530#5#2003-00004

PATIENT
  Age: 65 Year
  Sex: Male

DRUGS (15)
  1. ALPROSTADIL [Suspect]
     Indication: INTERMITTENT CLAUDICATION
     Dosage: 1.2 TIMES 60 UG PER WEEK; INTRAVENOUS DRIP
     Route: 041
     Dates: start: 20030331, end: 20030512
  2. ALPROSTADIL [Suspect]
     Indication: PERIPHERAL VASCULAR DISORDER
     Dosage: 1.2 TIMES 60 UG PER WEEK; INTRAVENOUS DRIP
     Route: 041
     Dates: start: 20030331, end: 20030512
  3. ALTERNATIVE DRUG (DOSE UNKNOWN) UNKNOWN (BLINDED DRUG) (ALTERNATIVE DR [Suspect]
     Indication: INTERMITTENT CLAUDICATION
     Dosage: 2 X 600 MG PER DAY; ORAL
     Route: 048
     Dates: start: 20030331, end: 20030516
  4. ALTERNATIVE DRUG (DOSE UNKNOWN) UNKNOWN (BLINDED DRUG) (ALTERNATIVE DR [Suspect]
     Indication: PERIPHERAL VASCULAR DISORDER
     Dosage: 2 X 600 MG PER DAY; ORAL
     Route: 048
     Dates: start: 20030331, end: 20030516
  5. BISOPROLOL 5MG TABLETS (BISOPROLOL) [Concomitant]
  6. DILTIAZEM HYDROCHLORIDE 90MG, CAPSULES SR (DILITAZEM) [Concomitant]
  7. DOXAZOSIN 2MG, TABLETS [Concomitant]
  8. ACETYLSALICYLIC ACID 300 MG [Concomitant]
  9. PIRETANIDE 6 MG, TABLETS [Concomitant]
  10. ATORVASTATIN 40 MG COATED TABLETS [Concomitant]
  11. DOXAZOSIN 2MG, TABLETS [Concomitant]
  12. INSULIN HUMAN (DOSE UNKNOWN), AMP SC (INSULIN HUMANINJECTION, ISOPHANE [Concomitant]
  13. INSULIN GLARGINE (DOSE UNKNOWN), AMP SC (INSULIN HUMAN) [Concomitant]
  14. RAMIPRIL 2.5MG/HYDROCHLOROTHIAZIDE 12.5MG, TABLETS (HYDROCHLOROTHIAZID [Concomitant]
  15. CLOPIDOGREL 75MG, COATED TABLETS (CLOPIDOGREL SULFATE) [Concomitant]

REACTIONS (8)
  - ANGINA PECTORIS [None]
  - BLOOD CREATINE PHOSPHOKINASE INCREASED [None]
  - CORONARY ARTERY STENOSIS [None]
  - COUGH [None]
  - MYOGLOBIN BLOOD INCREASED [None]
  - OEDEMA PERIPHERAL [None]
  - TROPONIN I INCREASED [None]
  - WHITE BLOOD CELL COUNT INCREASED [None]
